FAERS Safety Report 4695848-2 (Version None)
Quarter: 2005Q2

REPORT INFORMATION
  Report Type: 
  Country: None (occurrence: None)
  Receive Date: 20050607
  Receipt Date: 20041007
  Transmission Date: 20051028
  Serious: Yes (Hospitalization)
  Sender: FDA-Public Use
  Company Number: A03200403374

PATIENT
  Age: 24 Year
  Sex: Female

DRUGS (5)
  1. PLAQUENIL [Suspect]
     Indication: SYSTEMIC LUPUS ERYTHEMATOSUS
     Dosage: ORAL
     Route: 048
     Dates: start: 20040901, end: 20041001
  2. GABAPENTIN [Concomitant]
  3. BUPROPION HYDROCHLORIDE [Concomitant]
  4. NEURONTIN [Concomitant]
  5. WELLBURTIN [Concomitant]

REACTIONS (4)
  - CONVULSION [None]
  - DYSTONIA [None]
  - TIC [None]
  - VOMITING [None]
